FAERS Safety Report 9426868 (Version 1)
Quarter: 2013Q3

REPORT INFORMATION
  Report Type: Spontaneous
  Country: US (occurrence: US)
  Receive Date: 20130730
  Receipt Date: 20130730
  Transmission Date: 20140515
  Serious: No
  Sender: FDA-Public Use
  Company Number: US-SANOFI-AVENTIS-2013SA024877

PATIENT
  Age: 62 Year
  Sex: Female

DRUGS (3)
  1. AMBIEN [Suspect]
     Indication: SLEEP DISORDER
     Route: 048
  2. PERCOCET [Concomitant]
     Indication: PAIN
  3. ALL OTHER THERAPEUTIC PRODUCTS [Concomitant]

REACTIONS (1)
  - Drug ineffective [Unknown]
